FAERS Safety Report 17375126 (Version 2)
Quarter: 2021Q1

REPORT INFORMATION
  Report Type: Report from Study
  Country: GB (occurrence: GB)
  Receive Date: 20200205
  Receipt Date: 20210226
  Transmission Date: 20210419
  Serious: Yes (Hospitalization, Other)
  Sender: FDA-Public Use
  Company Number: GB-PFIZER INC-2020042765

PATIENT
  Age: 56 Year
  Sex: Female

DRUGS (21)
  1. DOCETAXEL. [Suspect]
     Active Substance: DOCETAXEL
     Indication: BREAST CANCER
     Dosage: 150 MG, EVERY 3 WEEKS (6 CYCLES)
     Route: 042
     Dates: start: 20151127
  2. TRASTUZUMAB EMTANSINE [Suspect]
     Active Substance: ADO-TRASTUZUMAB EMTANSINE
     Dosage: 672 MG, EVERY 3 WEEKS
     Route: 042
     Dates: start: 20151217, end: 20190602
  3. DENOSUMAB [Suspect]
     Active Substance: DENOSUMAB
     Dosage: 70 MG, ONCE EVRY MONTH
     Route: 058
     Dates: start: 20150820
  4. LOPERAMIDE [Concomitant]
     Active Substance: LOPERAMIDE
     Dosage: 2 MG, UNK (STANDARD DRUG IN SECOND CHEMO REGIME, AS NEEDED)
     Route: 048
     Dates: start: 20151126
  5. DOCETAXEL. [Suspect]
     Active Substance: DOCETAXEL
     Dosage: 150 MG, EVERY 3 WEEKS
     Route: 042
     Dates: start: 20151217, end: 20160308
  6. DENOSUMAB [Suspect]
     Active Substance: DENOSUMAB
     Indication: BREAST CANCER
     Dosage: 150 MG, EVERY 3 WEEKS
     Route: 042
     Dates: start: 20151126
  7. TRASTUZUMAB. [Suspect]
     Active Substance: TRASTUZUMAB
     Indication: BREAST CANCER
     Dosage: 672 MG, EVERY 3 WEEKS (6 CYCLES)
     Route: 042
     Dates: start: 20151127, end: 20181204
  8. DEXAMETHASONE. [Concomitant]
     Active Substance: DEXAMETHASONE
     Dosage: 16 MG, 1X/DAY (STANDARD DRUG IN SECOND STEROID REGIME,PRIOR TO CHEMO CYCLE)
     Route: 048
     Dates: start: 20151125
  9. LEVOFLOXACIN. [Concomitant]
     Active Substance: LEVOFLOXACIN
     Dosage: 500 MG, UNK (STANDARD PROPHYLACTIC DRUG GIVEN WITH 2ND REGIME)
     Route: 048
     Dates: start: 20151130
  10. DOMPERIDONE [Concomitant]
     Active Substance: DOMPERIDONE
     Dosage: 10 MG, UNK (STANDARD DRUG IN SECOND CHEMO REGIME, AS NEEDED)
     Route: 048
     Dates: start: 20151126
  11. PERTUZUMAB. [Suspect]
     Active Substance: PERTUZUMAB
     Dosage: 420 MG, EVERY 3 WEEKS (6 CYCLES)
     Route: 042
     Dates: start: 20151215, end: 20181204
  12. COLECALCIFEROL [Concomitant]
     Active Substance: CHOLECALCIFEROL
     Indication: PULMONARY EMBOLISM
     Dosage: 1 UNK, 1X/DAY (20000 UNIT)
     Route: 048
     Dates: start: 20151203
  13. CALCICHEW [Concomitant]
     Active Substance: CALCIUM CARBONATE
     Dosage: 1.25 G, 1X/DAY (STANDARD SUPPLIMENT)
     Route: 048
     Dates: start: 20150723
  14. PERTUZUMAB. [Suspect]
     Active Substance: PERTUZUMAB
     Indication: BREAST CANCER
     Dosage: 840 MG, (LOADING DOSE)
     Route: 042
     Dates: start: 20151125, end: 20151125
  15. DENOSUMAB [Suspect]
     Active Substance: DENOSUMAB
     Indication: BREAST CANCER
     Dosage: 120 MG, 1 CYCLE, ONCE IN 4 WEEKS
     Route: 058
     Dates: start: 20150723
  16. DALTEPARIN [Concomitant]
     Active Substance: DALTEPARIN
     Route: 058
     Dates: start: 20160421
  17. FLUCONAZOLE. [Concomitant]
     Active Substance: FLUCONAZOLE
     Dosage: 50 MG, UNK (STANDARDPROPHYLACTICFOR 2ND REGIME)
     Route: 048
     Dates: start: 20151130
  18. FLUCONAZOLE. [Concomitant]
     Active Substance: FLUCONAZOLE
     Dosage: 50 MG, UNK (START DAY 5 POST CHEMO FOR 7 DAYS)
     Route: 048
     Dates: start: 20151130
  19. TRASTUZUMAB EMTANSINE [Suspect]
     Active Substance: ADO-TRASTUZUMAB EMTANSINE
     Indication: BREAST CANCER
     Dosage: 672 MG, EVERY 3 WEEKS (6 CYCLES)
     Route: 042
     Dates: start: 20151126
  20. LETROZOLE. [Suspect]
     Active Substance: LETROZOLE
     Indication: BREAST CANCER
     Dosage: 2.5 MG, UNK
     Route: 048
     Dates: start: 20150709, end: 20151015
  21. DALTEPARIN [Concomitant]
     Active Substance: DALTEPARIN
     Dosage: 2 UNK, 1X/DAY (10000 UNITS)
     Route: 058
     Dates: start: 20160421

REACTIONS (9)
  - Neurotoxicity [Unknown]
  - Oropharyngeal pain [Recovered/Resolved]
  - Headache [Recovered/Resolved]
  - Febrile neutropenia [Recovered/Resolved]
  - Stomatitis [Unknown]
  - Nausea [Unknown]
  - Alopecia [Recovered/Resolved]
  - Rectal haemorrhage [Recovered/Resolved]
  - Constipation [Unknown]

NARRATIVE: CASE EVENT DATE: 20151203
